FAERS Safety Report 18424937 (Version 3)
Quarter: 2020Q4

REPORT INFORMATION
  Report Type: Report from Study
  Country: DE (occurrence: DE)
  Receive Date: 20201026
  Receipt Date: 20201226
  Transmission Date: 20210114
  Serious: Yes (Hospitalization)
  Sender: FDA-Public Use
  Company Number: DE-SHIRE-DE202034206

PATIENT
  Age: 50 Year
  Sex: Male

DRUGS (50)
  1. TEDUGLUTIDE [Suspect]
     Active Substance: TEDUGLUTIDE
     Dosage: 3.8 MILLIGRAM (TED DAILY DOSES 0.0400 MG/KG, TED DOSES PER WEEK 7)
     Route: 065
     Dates: start: 201904, end: 20190822
  2. TEDUGLUTIDE [Suspect]
     Active Substance: TEDUGLUTIDE
     Dosage: 3.2 MILLIGRAM (TED DAILY DOSES 0.0300 MG/KG, TED DOSES PER WEEK 4)
     Route: 065
     Dates: start: 20200810, end: 20200819
  3. TEDUGLUTIDE [Suspect]
     Active Substance: TEDUGLUTIDE
     Indication: SHORT-BOWEL SYNDROME
     Dosage: 4.2 MILLIGRAM (TED DAILY DOSE 0.0500 MG/KG, TED DOSES PER WEEK 7)
     Route: 065
     Dates: start: 20190111, end: 20190310
  4. TEDUGLUTIDE [Suspect]
     Active Substance: TEDUGLUTIDE
     Dosage: 3.8 MILLIGRAM (TED DAILY DOSES 0.0400 MG/KG, TED DOSES PER WEEK 7)
     Route: 065
     Dates: start: 201904, end: 20190822
  5. TEDUGLUTIDE [Suspect]
     Active Substance: TEDUGLUTIDE
     Dosage: 3.8 MILLIGRAM (TED DAILY DOSES 0.0400 MG/KG, TED DOSES PER WEEK 4)
     Route: 065
     Dates: start: 20190823, end: 20190829
  6. TEDUGLUTIDE [Suspect]
     Active Substance: TEDUGLUTIDE
     Dosage: 3.8 MILLIGRAM (TED DAILY DOSES 0.0400 MG/KG, TED DOSES PER WEEK 4)
     Route: 065
     Dates: start: 20190823, end: 20190829
  7. TEDUGLUTIDE [Suspect]
     Active Substance: TEDUGLUTIDE
     Dosage: 3.2 MILLIGRAM (TED DAILY DOSES 0.0300 MG/KG, TED DOSES PER WEEK 4)
     Route: 065
     Dates: start: 20200810, end: 20200819
  8. TEDUGLUTIDE [Suspect]
     Active Substance: TEDUGLUTIDE
     Dosage: 2.6 MILLIGRAM (TED DAILY DOSES 0.0300 MG/KG, TED DOSES PER WEEK 7)
     Route: 065
     Dates: start: 20200820, end: 202010
  9. TEDUGLUTIDE [Suspect]
     Active Substance: TEDUGLUTIDE
     Dosage: 2.6 MILLIGRAM (TED DAILY DOSES 0.0300 MG/KG, TED DOSES PER WEEK 7)
     Route: 065
     Dates: start: 20200820, end: 202010
  10. TEDUGLUTIDE [Suspect]
     Active Substance: TEDUGLUTIDE
     Dosage: 3.8 MILLIGRAM (TED DAILY DOSES 0.0400 MG/KG, TED DOSES PER WEEK 4)
     Route: 065
     Dates: start: 20190823, end: 20190829
  11. TEDUGLUTIDE [Suspect]
     Active Substance: TEDUGLUTIDE
     Dosage: 2.0 MILLIGRAM (TED DAILY DOSES 0.2700 MG/KG, TED DOSES PER WEEK 7)
     Route: 065
     Dates: start: 20190830, end: 20191014
  12. TEDUGLUTIDE [Suspect]
     Active Substance: TEDUGLUTIDE
     Dosage: 2.5 MILLIGRAM (TED DAILY DOSES 0.2700 MG/KG, TED DOSES PER WEEK 7)
     Route: 065
     Dates: start: 20191015, end: 20191027
  13. TEDUGLUTIDE [Suspect]
     Active Substance: TEDUGLUTIDE
     Dosage: 2.5 MILLIGRAM (TED DAILY DOSES 0.0300 MG/KG, TED DOSES PER WEEK 7)
     Route: 065
     Dates: start: 20191028, end: 20200214
  14. TEDUGLUTIDE [Suspect]
     Active Substance: TEDUGLUTIDE
     Dosage: 2.6 MILLIGRAM (TED DAILY DOSES 0.0300 MG/KG, TED DOSES PER WEEK 7)
     Route: 065
     Dates: start: 20200820, end: 202010
  15. TEDUGLUTIDE [Suspect]
     Active Substance: TEDUGLUTIDE
     Indication: SHORT-BOWEL SYNDROME
     Dosage: 4.2 MILLIGRAM (TED DAILY DOSE 0.0500 MG/KG, TED DOSES PER WEEK 7)
     Route: 065
     Dates: start: 20190111, end: 20190310
  16. TEDUGLUTIDE [Suspect]
     Active Substance: TEDUGLUTIDE
     Dosage: 2.5 MILLIGRAM (TED DAILY DOSES 0.2700 MG/KG, TED DOSES PER WEEK 7)
     Route: 065
     Dates: start: 20191015, end: 20191027
  17. TEDUGLUTIDE [Suspect]
     Active Substance: TEDUGLUTIDE
     Dosage: 2.5 MILLIGRAM (TED DAILY DOSES 0.0300 MG/KG, TED DOSES PER WEEK 7)
     Route: 065
     Dates: start: 20191028, end: 20200214
  18. TEDUGLUTIDE [Suspect]
     Active Substance: TEDUGLUTIDE
     Dosage: 3.2 (TED DAILY DOSES 0.0300 MG/KG, TED DOSES PER WEEK 7)
     Route: 065
     Dates: start: 202010
  19. TEDUGLUTIDE [Suspect]
     Active Substance: TEDUGLUTIDE
     Dosage: 3.2 (TED DAILY DOSES 0.0300 MG/KG, TED DOSES PER WEEK 7)
     Route: 065
     Dates: start: 202010
  20. IBUPROFEN. [Concomitant]
     Active Substance: IBUPROFEN
     Indication: ARTHRALGIA
  21. TEDUGLUTIDE [Suspect]
     Active Substance: TEDUGLUTIDE
     Dosage: 4.0 MILLIGRAM (TED DAILY DOSES 0.0500 MG/KG, TED DOSES PER WEEK 7)
     Route: 065
     Dates: start: 20190311
  22. TEDUGLUTIDE [Suspect]
     Active Substance: TEDUGLUTIDE
     Dosage: 4.0 MILLIGRAM (TED DAILY DOSES 0.0500 MG/KG, TED DOSES PER WEEK 7)
     Route: 065
     Dates: start: 20190311
  23. TEDUGLUTIDE [Suspect]
     Active Substance: TEDUGLUTIDE
     Dosage: 4.0 MILLIGRAM (TED DAILY DOSES 0.0500 MG/KG, TED DOSES PER WEEK 7)
     Route: 065
     Dates: start: 20190311
  24. TEDUGLUTIDE [Suspect]
     Active Substance: TEDUGLUTIDE
     Dosage: 2.0 MILLIGRAM (TED DAILY DOSES 0.2700 MG/KG, TED DOSES PER WEEK 7)
     Route: 065
     Dates: start: 20190830, end: 20191014
  25. TEDUGLUTIDE [Suspect]
     Active Substance: TEDUGLUTIDE
     Dosage: 2.5 MILLIGRAM (TED DAILY DOSES 0.2700 MG/KG, TED DOSES PER WEEK 7)
     Route: 065
     Dates: start: 20191015, end: 20191027
  26. TEDUGLUTIDE [Suspect]
     Active Substance: TEDUGLUTIDE
     Dosage: 2.5 MILLIGRAM (TED DAILY DOSES 0.0300 MG/KG, TED DOSES PER WEEK 7)
     Route: 065
     Dates: start: 20191028, end: 20200214
  27. TEDUGLUTIDE [Suspect]
     Active Substance: TEDUGLUTIDE
     Dosage: 3.2 MILLIGRAM (TED DAILY DOSES 0.0300 MG/KG, TED DOSES PER WEEK 7)
     Route: 065
     Dates: start: 20200218
  28. TEDUGLUTIDE [Suspect]
     Active Substance: TEDUGLUTIDE
     Dosage: 3.2 MILLIGRAM (TED DAILY DOSES 0.0300 MG/KG, TED DOSES PER WEEK 7)
     Route: 065
     Dates: start: 20200218
  29. TEDUGLUTIDE [Suspect]
     Active Substance: TEDUGLUTIDE
     Dosage: 3.2 (TED DAILY DOSES 0.0300 MG/KG, TED DOSES PER WEEK 7)
     Route: 065
     Dates: start: 202010
  30. SELENASE [SELENIDE SODIUM] [Concomitant]
     Indication: SELENIUM DEFICIENCY
  31. TEDUGLUTIDE [Suspect]
     Active Substance: TEDUGLUTIDE
     Dosage: 3.8 MILLIGRAM (TED DAILY DOSES 0.0400 MG/KG, TED DOSES PER WEEK 7)
     Route: 065
     Dates: start: 201904, end: 20190822
  32. TEDUGLUTIDE [Suspect]
     Active Substance: TEDUGLUTIDE
     Dosage: 2.5 MILLIGRAM (TED DAILY DOSES 0.2700 MG/KG, TED DOSES PER WEEK 7)
     Route: 065
     Dates: start: 20191015, end: 20191027
  33. TEDUGLUTIDE [Suspect]
     Active Substance: TEDUGLUTIDE
     Dosage: 3.2 MILLIGRAM (TED DAILY DOSES 0.0300 MG/KG, TED DOSES PER WEEK 4)
     Route: 065
     Dates: start: 20200810, end: 20200819
  34. TEDUGLUTIDE [Suspect]
     Active Substance: TEDUGLUTIDE
     Dosage: 3.2 (TED DAILY DOSES 0.0300 MG/KG, TED DOSES PER WEEK 7)
     Route: 065
     Dates: start: 202010
  35. KALINOR RETARD P [Concomitant]
     Active Substance: POTASSIUM CHLORIDE
     Indication: PRODUCT USED FOR UNKNOWN INDICATION
  36. TRAMAL [Concomitant]
     Active Substance: TRAMADOL
     Dosage: UNK
     Route: 048
     Dates: start: 20201102
  37. TEDUGLUTIDE [Suspect]
     Active Substance: TEDUGLUTIDE
     Indication: SHORT-BOWEL SYNDROME
     Dosage: 4.2 MILLIGRAM (TED DAILY DOSE 0.0500 MG/KG, TED DOSES PER WEEK 7)
     Route: 065
     Dates: start: 20190111, end: 20190310
  38. TEDUGLUTIDE [Suspect]
     Active Substance: TEDUGLUTIDE
     Dosage: 4.0 MILLIGRAM (TED DAILY DOSES 0.0500 MG/KG, TED DOSES PER WEEK 7)
     Route: 065
     Dates: start: 20190311
  39. TEDUGLUTIDE [Suspect]
     Active Substance: TEDUGLUTIDE
     Dosage: 3.8 MILLIGRAM (TED DAILY DOSES 0.0400 MG/KG, TED DOSES PER WEEK 4)
     Route: 065
     Dates: start: 20190823, end: 20190829
  40. TEDUGLUTIDE [Suspect]
     Active Substance: TEDUGLUTIDE
     Dosage: 2.0 MILLIGRAM (TED DAILY DOSES 0.2700 MG/KG, TED DOSES PER WEEK 7)
     Route: 065
     Dates: start: 20190830, end: 20191014
  41. TEDUGLUTIDE [Suspect]
     Active Substance: TEDUGLUTIDE
     Dosage: 2.0 MILLIGRAM (TED DAILY DOSES 0.2700 MG/KG, TED DOSES PER WEEK 7)
     Route: 065
     Dates: start: 20190830, end: 20191014
  42. PANTOZOL [Concomitant]
     Active Substance: PANTOPRAZOLE SODIUM
     Indication: PRODUCT USED FOR UNKNOWN INDICATION
  43. TRAMAL [Concomitant]
     Active Substance: TRAMADOL
     Indication: FLANK PAIN
     Dosage: UNK UNK, TID
     Route: 048
     Dates: start: 20201001, end: 20201101
  44. TEDUGLUTIDE [Suspect]
     Active Substance: TEDUGLUTIDE
     Indication: SHORT-BOWEL SYNDROME
     Dosage: 4.2 MILLIGRAM (TED DAILY DOSE 0.0500 MG/KG, TED DOSES PER WEEK 7)
     Route: 065
     Dates: start: 20190111, end: 20190310
  45. TEDUGLUTIDE [Suspect]
     Active Substance: TEDUGLUTIDE
     Dosage: 3.8 MILLIGRAM (TED DAILY DOSES 0.0400 MG/KG, TED DOSES PER WEEK 7)
     Route: 065
     Dates: start: 201904, end: 20190822
  46. TEDUGLUTIDE [Suspect]
     Active Substance: TEDUGLUTIDE
     Dosage: 2.5 MILLIGRAM (TED DAILY DOSES 0.0300 MG/KG, TED DOSES PER WEEK 7)
     Route: 065
     Dates: start: 20191028, end: 20200214
  47. TEDUGLUTIDE [Suspect]
     Active Substance: TEDUGLUTIDE
     Dosage: 3.2 MILLIGRAM (TED DAILY DOSES 0.0300 MG/KG, TED DOSES PER WEEK 7)
     Route: 065
     Dates: start: 20200218
  48. TEDUGLUTIDE [Suspect]
     Active Substance: TEDUGLUTIDE
     Dosage: 3.2 MILLIGRAM (TED DAILY DOSES 0.0300 MG/KG, TED DOSES PER WEEK 7)
     Route: 065
     Dates: start: 20200218
  49. TEDUGLUTIDE [Suspect]
     Active Substance: TEDUGLUTIDE
     Dosage: 3.2 MILLIGRAM (TED DAILY DOSES 0.0300 MG/KG, TED DOSES PER WEEK 4)
     Route: 065
     Dates: start: 20200810, end: 20200819
  50. TEDUGLUTIDE [Suspect]
     Active Substance: TEDUGLUTIDE
     Dosage: 2.6 MILLIGRAM (TED DAILY DOSES 0.0300 MG/KG, TED DOSES PER WEEK 7)
     Route: 065
     Dates: start: 20200820, end: 202010

REACTIONS (5)
  - Renal colic [Recovered/Resolved]
  - Urinary tract disorder [Recovered/Resolved]
  - Flank pain [Recovered/Resolved]
  - Ureteric stenosis [Recovered/Resolved]
  - Pain [Recovered/Resolved]

NARRATIVE: CASE EVENT DATE: 20200828
